FAERS Safety Report 10529811 (Version 1)
Quarter: 2014Q4

REPORT INFORMATION
  Report Type: Spontaneous
  Country: US (occurrence: None)
  Receive Date: 20141020
  Receipt Date: 20141020
  Transmission Date: 20150528
  Serious: No
  Sender: FDA-Public Use
  Company Number: None

PATIENT
  Age: 47 Year
  Sex: Female
  Weight: 47.63 kg

DRUGS (6)
  1. VITAMIN D [Concomitant]
     Active Substance: CHOLECALCIFEROL
  2. BANANA BOAT BABY TEAR FREE LOTION SPF 50 [Suspect]
     Active Substance: AVOBENZONE\HOMOSALATE\OCTINOXATE\OCTISALATE\OCTOCRYLENE
     Indication: PROPHYLAXIS
     Dosage: SUNSCREEN APPLIED TOPICALLY, 2X DAILY X 2 DAYS
     Route: 061
     Dates: start: 20140830, end: 20140831
  3. CARNITINE [Concomitant]
     Active Substance: CARNITINE
  4. MILK THISTLE [Concomitant]
     Active Substance: MILK THISTLE
  5. BANANA BOAT BABY TEAR FREE LOTION SPF 50 [Suspect]
     Active Substance: AVOBENZONE\HOMOSALATE\OCTINOXATE\OCTISALATE\OCTOCRYLENE
     Indication: SUNBURN
     Dosage: SUNSCREEN APPLIED TOPICALLY, 2X DAILY X 2 DAYS
     Route: 061
     Dates: start: 20140830, end: 20140831
  6. COQ10 [Concomitant]
     Active Substance: UBIDECARENONE

REACTIONS (1)
  - Dermatitis atopic [None]

NARRATIVE: CASE EVENT DATE: 20140902
